FAERS Safety Report 19906725 (Version 1)
Quarter: 2021Q3

REPORT INFORMATION
  Report Type: Spontaneous
  Country: CA (occurrence: CA)
  Receive Date: 20210930
  Receipt Date: 20210930
  Transmission Date: 20211014
  Serious: Yes (Other)
  Sender: FDA-Public Use
  Company Number: CA-TEVA-2021-CA-1958149

PATIENT
  Age: 73 Year
  Sex: Female
  Weight: 78 kg

DRUGS (14)
  1. CHOLECALCIFEROL [Concomitant]
     Active Substance: CHOLECALCIFEROL
  2. CEFALEXIN [Suspect]
     Active Substance: CEPHALEXIN
     Indication: INTESTINAL FISTULA INFECTION
     Dosage: 1000 MILLIGRAM DAILY;
     Route: 065
  3. AMLODIPINE [Concomitant]
     Active Substance: AMLODIPINE BESYLATE
  4. CANNABIDIOL [Concomitant]
     Active Substance: CANNABIDIOL
  5. FUROSEMIDE. [Concomitant]
     Active Substance: FUROSEMIDE
  6. PANTOPRAZOLE [Concomitant]
     Active Substance: PANTOPRAZOLE
  7. BISOPROLOL [Concomitant]
     Active Substance: BISOPROLOL
  8. REPLAVITE [Concomitant]
  9. SEVELAMER [Concomitant]
     Active Substance: SEVELAMER
  10. CLOBETASOL CREAM 0.05% [Concomitant]
  11. ASA [Concomitant]
     Active Substance: ASPIRIN
  12. DOVONEX [Concomitant]
     Active Substance: CALCIPOTRIENE
  13. FERROUS FUMARATE [Concomitant]
     Active Substance: FERROUS FUMARATE
  14. DOCUSATE SODIUM. [Concomitant]
     Active Substance: DOCUSATE SODIUM

REACTIONS (1)
  - Rash papular [Unknown]
